FAERS Safety Report 19385490 (Version 1)
Quarter: 2021Q2

REPORT INFORMATION
  Report Type: Spontaneous
  Country: GB (occurrence: GB)
  Receive Date: 20210608
  Receipt Date: 20210608
  Transmission Date: 20210717
  Serious: Yes (Other)
  Sender: FDA-Public Use
  Company Number: GB-ACCORD-227021

PATIENT

DRUGS (5)
  1. VASELINE PURE [Suspect]
     Active Substance: PETROLATUM
     Indication: PRODUCT USED FOR UNKNOWN INDICATION
  2. CYANOCOBALAMIN. [Suspect]
     Active Substance: CYANOCOBALAMIN
     Indication: PRODUCT USED FOR UNKNOWN INDICATION
  3. ASTRAZENECA COVID?19 VACCINE [Suspect]
     Active Substance: AZD-1222
     Indication: PRODUCT USED FOR UNKNOWN INDICATION
     Dosage: DOSE 1
     Dates: start: 20210211
  4. BENZYDAMINE [Concomitant]
     Active Substance: BENZYDAMINE
  5. TOCOPHEROL [Suspect]
     Active Substance: TOCOPHEROL
     Indication: PRODUCT USED FOR UNKNOWN INDICATION

REACTIONS (5)
  - Autoimmune dermatitis [Not Recovered/Not Resolved]
  - Chapped lips [Recovering/Resolving]
  - Tongue ulceration [Recovering/Resolving]
  - Lip swelling [Unknown]
  - Vitamin B12 deficiency [Recovering/Resolving]

NARRATIVE: CASE EVENT DATE: 20210412
